FAERS Safety Report 18628837 (Version 1)
Quarter: 2020Q4

REPORT INFORMATION
  Report Type: Spontaneous
  Country: CH (occurrence: CH)
  Receive Date: 20201217
  Receipt Date: 20201217
  Transmission Date: 20210114
  Serious: Yes (Other)
  Sender: FDA-Public Use
  Company Number: CH-PFIZER INC-2020493930

PATIENT
  Age: 29 Year
  Sex: Female

DRUGS (2)
  1. TEMESTA (LORAZEPAM) [Suspect]
     Active Substance: LORAZEPAM
     Dosage: START DATE AS WELL AS STOP DATE OF TREATMENT NOT KNOWN; AS NECESSARY
     Route: 048
  2. ANXIOLIT [Suspect]
     Active Substance: OXAZEPAM
     Dosage: UNK, AS NEEDED START DATE AS WELL AS STOP DATE OF TREATMENT NOT KNOWN
     Route: 048

REACTIONS (2)
  - Maternal exposure during pregnancy [Recovered/Resolved]
  - Abortion spontaneous [Recovered/Resolved]

NARRATIVE: CASE EVENT DATE: 20191229
